FAERS Safety Report 6121344-1 (Version None)
Quarter: 2009Q1

REPORT INFORMATION
  Report Type: 
  Country: None (occurrence: None)
  Receive Date: 20090313
  Receipt Date: 20090313
  Transmission Date: 20090719
  Serious: No
  Sender: FDA-Public Use
  Company Number: None

PATIENT
  Sex: Female
  Weight: 90.7194 kg

DRUGS (2)
  1. EFFEXOR XR [Suspect]
     Indication: DEPRESSION
     Dosage: 150 MG 2 TIMES DAILY PO
     Route: 048
     Dates: start: 20090225, end: 20090306
  2. AMBIEN [Concomitant]

REACTIONS (12)
  - COLD SWEAT [None]
  - DRUG DOSE OMISSION [None]
  - EMOTIONAL DISORDER [None]
  - HEADACHE [None]
  - HYPERAESTHESIA [None]
  - HYPERHIDROSIS [None]
  - INFLUENZA [None]
  - INFLUENZA LIKE ILLNESS [None]
  - PARAESTHESIA [None]
  - PARAESTHESIA ORAL [None]
  - PRODUCT QUALITY ISSUE [None]
  - STRESS [None]
